FAERS Safety Report 6133382-3 (Version None)
Quarter: 2009Q1

REPORT INFORMATION
  Report Type: 
  Country: None (occurrence: None)
  Receive Date: 20090324
  Receipt Date: 20090324
  Transmission Date: 20090719
  Serious: Yes (Other)
  Sender: FDA-Public Use
  Company Number: None

PATIENT
  Age: 40 Year
  Sex: Male
  Weight: 127.0072 kg

DRUGS (2)
  1. CIPROFLOXACIN HCL [Suspect]
     Indication: PROSTATITIS
     Dosage: 500MG TWICE A DAY
     Dates: start: 20080216, end: 20080912
  2. CIPROFLOXACIN HCL [Suspect]
     Indication: PROSTATITIS
     Dosage: 500MG TWICE A DAY
     Dates: start: 20090110, end: 20090304

REACTIONS (2)
  - ARTHRALGIA [None]
  - TENDON PAIN [None]
